FAERS Safety Report 7014823-6 (Version None)
Quarter: 2010Q3

REPORT INFORMATION
  Report Type: 
  Country: None (occurrence: None)
  Receive Date: 20100927
  Receipt Date: 20100910
  Transmission Date: 20110219
  Serious: Yes (Other)
  Sender: FDA-Public Use
  Company Number: DE-SANOFI-AVENTIS-2010SA054382

PATIENT
  Age: 80 Year
  Sex: Male

DRUGS (4)
  1. PLAVIX [Suspect]
     Indication: INFARCTION
  2. PLAVIX [Suspect]
  3. PLAVIX [Suspect]
     Indication: ACUTE CORONARY SYNDROME
  4. ALL OTHER THERAPEUTIC PRODUCTS [Concomitant]
     Indication: PRODUCT USED FOR UNKNOWN INDICATION

REACTIONS (1)
  - TENDON RUPTURE [None]
